FAERS Safety Report 20750119 (Version 1)
Quarter: 2022Q2

REPORT INFORMATION
  Report Type: Spontaneous
  Country: US (occurrence: US)
  Receive Date: 20220426
  Receipt Date: 20220426
  Transmission Date: 20220721
  Serious: Yes (Other)
  Sender: FDA-Public Use
  Company Number: US-drreddys-SPO/USA/22/0149258

PATIENT
  Age: 42 Year
  Sex: Male

DRUGS (1)
  1. TESTOSTERONE [Suspect]
     Active Substance: TESTOSTERONE
     Indication: Hypogonadism
     Route: 030

REACTIONS (3)
  - Polycythaemia [Unknown]
  - Libido increased [Unknown]
  - Seborrhoea [Unknown]
